FAERS Safety Report 8512807-X (Version None)
Quarter: 2012Q3

REPORT INFORMATION
  Report Type: 
  Country: None (occurrence: None)
  Receive Date: 20120716
  Receipt Date: 20120706
  Transmission Date: 20120928
  Serious: Yes (Other)
  Sender: FDA-Public Use
  Company Number: GR-PFIZER INC-2012159066

PATIENT
  Age: 69 Year
  Sex: Male

DRUGS (1)
  1. TORISEL [Suspect]
     Indication: MANTLE CELL LYMPHOMA
     Dosage: 50 MG, UNK
     Dates: start: 20120430, end: 20120627

REACTIONS (6)
  - HEPATOTOXICITY [None]
  - TRANSAMINASES INCREASED [None]
  - CARDIAC FAILURE [None]
  - BLOOD ALKALINE PHOSPHATASE INCREASED [None]
  - PLEURAL EFFUSION [None]
  - ASCITES [None]
